FAERS Safety Report 9636802 (Version 39)
Quarter: 2025Q2

REPORT INFORMATION
  Report Type: Report from Study
  Country: CA (occurrence: CA)
  Receive Date: 20131022
  Receipt Date: 20250411
  Transmission Date: 20250716
  Serious: Yes (Hospitalization, Other)
  Sender: ROCHE
  Company Number: CA-ROCHE-1264965

PATIENT
  Age: 53 Year
  Sex: Female
  Weight: 71.0 kg

DRUGS (29)
  1. RITUXAN [Suspect]
     Active Substance: RITUXIMAB
     Indication: Rheumatoid arthritis
     Route: 042
  2. RITUXAN [Suspect]
     Active Substance: RITUXIMAB
     Route: 042
  3. ACTEMRA [Suspect]
     Active Substance: TOCILIZUMAB
     Indication: Rheumatoid arthritis
     Dosage: 4 MG/KG
     Route: 042
     Dates: start: 20130724
  4. ACTEMRA [Suspect]
     Active Substance: TOCILIZUMAB
     Dosage: 8 MG/KG
     Route: 042
     Dates: start: 20130916
  5. ACTEMRA [Suspect]
     Active Substance: TOCILIZUMAB
     Route: 042
     Dates: start: 20140603
  6. ACTEMRA [Suspect]
     Active Substance: TOCILIZUMAB
     Route: 042
     Dates: start: 20141002
  7. ACTEMRA [Suspect]
     Active Substance: TOCILIZUMAB
     Route: 042
     Dates: start: 20141201
  8. ACTEMRA [Suspect]
     Active Substance: TOCILIZUMAB
     Route: 042
     Dates: start: 20150302, end: 20150330
  9. ACTEMRA [Suspect]
     Active Substance: TOCILIZUMAB
     Route: 042
  10. CORTISONE [Suspect]
     Active Substance: CORTISONE
     Indication: Rheumatoid arthritis
     Route: 065
  11. SYNTHROID [Concomitant]
     Active Substance: LEVOTHYROXINE SODIUM
  12. PREDNISONE [Concomitant]
     Active Substance: PREDNISONE
  13. PREDNISONE [Concomitant]
     Active Substance: PREDNISONE
  14. MORPHINE SULFATE [Concomitant]
     Active Substance: MORPHINE SULFATE
  15. METHOTREXATE [Concomitant]
     Active Substance: METHOTREXATE
  16. VARENICLINE TARTRATE [Concomitant]
     Active Substance: VARENICLINE TARTRATE
  17. FOLIC ACID [Concomitant]
     Active Substance: FOLIC ACID
  18. ALENDRONATE [Concomitant]
     Active Substance: ALENDRONATE SODIUM
  19. HYDROXYZINE [Concomitant]
     Active Substance: HYDROXYZINE HYDROCHLORIDE
  20. INDOMETHACIN [Concomitant]
     Active Substance: INDOMETHACIN
  21. ALBUTEROL [Concomitant]
     Active Substance: ALBUTEROL
  22. AERIUS (DESLORATADINE) [Concomitant]
     Active Substance: DESLORATADINE
  23. ELAVIL [Concomitant]
     Active Substance: AMITRIPTYLINE HYDROCHLORIDE
  24. NICODERM CQ [Concomitant]
     Active Substance: NICOTINE
  25. PENNSAID [Concomitant]
     Active Substance: DICLOFENAC SODIUM
  26. FUCIDIN [Concomitant]
     Active Substance: FUSIDATE SODIUM
  27. DIPHENHYDRAMINE HYDROCHLORIDE [Concomitant]
     Active Substance: DIPHENHYDRAMINE HYDROCHLORIDE
     Route: 048
     Dates: start: 20150519
  28. ACETAMINOPHEN [Concomitant]
     Active Substance: ACETAMINOPHEN
     Route: 048
     Dates: start: 20150519
  29. METHYLPREDNISOLONE [Concomitant]
     Active Substance: METHYLPREDNISOLONE
     Route: 042
     Dates: start: 20150519

REACTIONS (38)
  - Pain [Unknown]
  - Neoplasm [Unknown]
  - Splenic infarction [Recovered/Resolved]
  - Condition aggravated [Not Recovered/Not Resolved]
  - Retroperitoneal lymphadenopathy [Not Recovered/Not Resolved]
  - Thrombosis [Recovered/Resolved]
  - Weight increased [Unknown]
  - Stress [Not Recovered/Not Resolved]
  - Arthritis [Unknown]
  - Splenic infarction [Unknown]
  - Restless legs syndrome [Recovered/Resolved]
  - Hypertension [Unknown]
  - Headache [Recovered/Resolved]
  - Insomnia [Unknown]
  - Bronchitis [Recovering/Resolving]
  - Haemoptysis [Recovering/Resolving]
  - Rheumatoid arthritis [Unknown]
  - Anxiety [Unknown]
  - Abdominal pain upper [Unknown]
  - Weight decreased [Unknown]
  - Infusion related reaction [Unknown]
  - Nasopharyngitis [Recovered/Resolved]
  - Limb mass [Unknown]
  - Heart rate decreased [Unknown]
  - Pain in extremity [Not Recovered/Not Resolved]
  - Joint swelling [Not Recovered/Not Resolved]
  - Arthralgia [Unknown]
  - Eye inflammation [Not Recovered/Not Resolved]
  - Heart rate decreased [Unknown]
  - Blood pressure diastolic decreased [Unknown]
  - Nausea [Unknown]
  - Biliary obstruction [Unknown]
  - Hepatic failure [Unknown]
  - Blood pressure increased [Unknown]
  - Blood pressure fluctuation [Unknown]
  - Oxygen saturation decreased [Unknown]
  - Pain [Not Recovered/Not Resolved]
  - Drug ineffective [Unknown]

NARRATIVE: CASE EVENT DATE: 20131001
